FAERS Safety Report 24462029 (Version 1)
Quarter: 2024Q4

REPORT INFORMATION
  Report Type: Spontaneous
  Country: CN (occurrence: CN)
  Receive Date: 20241018
  Receipt Date: 20241018
  Transmission Date: 20250115
  Serious: No
  Sender: ROCHE
  Company Number: CN-ROCHE-3565995

PATIENT
  Age: 87 Year
  Sex: Female

DRUGS (11)
  1. MABTHERA [Suspect]
     Active Substance: RITUXIMAB
     Indication: Diffuse large B-cell lymphoma
     Dosage: MINI R-CHOP, TO 23 JUN 2023?MINI R-CHOP, 14 JUL 2023?R, 26 AUG 2023, 17 SEP 2023
     Route: 065
     Dates: start: 20230420
  2. POLIVY [Suspect]
     Active Substance: POLATUZUMAB VEDOTIN-PIIQ
     Indication: Diffuse large B-cell lymphoma
     Dosage: D1,08-APR-2024,30-APR-2024
     Route: 065
     Dates: start: 20240228
  3. CYCLOPHOSPHAMIDE [Concomitant]
     Active Substance: CYCLOPHOSPHAMIDE
     Indication: Diffuse large B-cell lymphoma
     Dosage: MINI R-CHOP, TO 23 JUN 2023,?MINI R-CHOP, 14 JUL 2023
     Dates: start: 20230420
  4. DOXORUBICIN [Concomitant]
     Active Substance: DOXORUBICIN
     Indication: Diffuse large B-cell lymphoma
     Dosage: MINI R-CHOP, TO 23 JUN 2023,?MINI R-CHOP, 14 JUL 2023
     Dates: start: 20230420
  5. VINCRISTINE [Concomitant]
     Active Substance: VINCRISTINE
     Indication: Diffuse large B-cell lymphoma
     Dosage: MINI R-CHOP, TO 23 JUN 2023,?MINI R-CHOP, 14 JUL 2023
     Dates: start: 20230420
  6. ZANUBRUTINIB [Concomitant]
     Active Substance: ZANUBRUTINIB
     Indication: Diffuse large B-cell lymphoma
     Dosage: FOR MAINTAINED THERAPY
  7. LENALIDOMIDE [Concomitant]
     Active Substance: LENALIDOMIDE
     Indication: Diffuse large B-cell lymphoma
     Dosage: 8 APR 2024, 30 APR 2024
     Dates: start: 20240228
  8. ZUBERITAMAB [Concomitant]
     Active Substance: ZUBERITAMAB
     Indication: Diffuse large B-cell lymphoma
     Dosage: D2,30 APR 2024
     Dates: start: 20240408
  9. PANTOPRAZOLE [Concomitant]
     Active Substance: PANTOPRAZOLE
  10. THROMBIN [Concomitant]
     Active Substance: THROMBIN
  11. RITUXIMAB [Concomitant]
     Active Substance: RITUXIMAB
     Indication: Diffuse large B-cell lymphoma
     Dosage: D2
     Route: 042
     Dates: start: 20240228

REACTIONS (1)
  - COVID-19 [Unknown]

NARRATIVE: CASE EVENT DATE: 20240101
